FAERS Safety Report 4795792-6 (Version None)
Quarter: 2005Q3

REPORT INFORMATION
  Report Type: 
  Country: None (occurrence: None)
  Receive Date: 20050916
  Receipt Date: 20040909
  Transmission Date: 20060218
  Serious: Yes (Other)
  Sender: FDA-Public Use
  Company Number: US-JNJFOC-20040606122

PATIENT
  Age: 57 Year
  Sex: Female

DRUGS (2)
  1. TOPAMAX [Suspect]
     Indication: AFFECTIVE DISORDER
     Dosage: 50 MG, IN 1 DAY, ORAL
     Route: 048
     Dates: start: 20040524, end: 20040527
  2. METFORMIN (METFORMIN) [Suspect]
     Indication: DIABETES MELLITUS NON-INSULIN-DEPENDENT

REACTIONS (1)
  - HYPOGLYCAEMIA [None]
